FAERS Safety Report 6013471-4 (Version None)
Quarter: 2008Q4

REPORT INFORMATION
  Report Type: 
  Country: None (occurrence: None)
  Receive Date: 20081219
  Receipt Date: 20081212
  Transmission Date: 20090506
  Serious: Yes (Life-Threatening, Hospitalization, Other)
  Sender: FDA-Public Use
  Company Number: JP-ASTRAZENECA-2008SE05780

PATIENT
  Age: 67 Year
  Sex: Female

DRUGS (3)
  1. AMIAS [Suspect]
     Indication: CARDIAC FAILURE CONGESTIVE
     Route: 048
     Dates: start: 20080626, end: 20080826
  2. DICLOFENAC SODIUM [Interacting]
     Indication: RHEUMATOID ARTHRITIS
     Route: 048
     Dates: start: 20010101, end: 20080828
  3. METHOTREXATE [Interacting]
     Indication: RHEUMATOID ARTHRITIS
     Route: 048
     Dates: start: 20010101, end: 20080826

REACTIONS (6)
  - BLOOD CREATININE INCREASED [None]
  - BONE MARROW FAILURE [None]
  - DRUG INTERACTION [None]
  - GASTRIC HAEMORRHAGE [None]
  - PANCYTOPENIA [None]
  - SEPSIS [None]
